FAERS Safety Report 9405405 (Version 3)
Quarter: 2013Q4

REPORT INFORMATION
  Report Type: Spontaneous
  Country: DE (occurrence: DE)
  Receive Date: 20130715
  Receipt Date: 20131106
  Transmission Date: 20140711
  Serious: Yes (Hospitalization)
  Sender: FDA-Public Use
  Company Number: SYM-2013-06003

PATIENT
  Age: 76 Year
  Sex: Female

DRUGS (16)
  1. 5 FU [Suspect]
     Indication: COLORECTAL CANCER METASTATIC
     Route: 040
     Dates: start: 20130613, end: 20130613
  2. AFLIBERCEPT [Suspect]
     Indication: COLORECTAL CANCER METASTATIC
     Route: 042
     Dates: start: 20130613, end: 20130613
  3. IRINOTECAN [Suspect]
     Indication: COLORECTAL CANCER METASTATIC
     Route: 042
     Dates: start: 20130613, end: 20130613
  4. LEUCOVORIN [Suspect]
     Indication: COLORECTAL CANCER METASTATIC
     Route: 042
     Dates: start: 20130613, end: 20130613
  5. LOPERAMIDE (LOPERAMIDE)(LOPERAMIDE) [Concomitant]
  6. ANALGESICS (ANALGESICS) [Concomitant]
  7. AGIOLAX (AGIOLAX) [Concomitant]
  8. METOPROLOL (METOPROLOL TARTRATE) (METOPROLOL TARTRATE) [Concomitant]
  9. AMLODIPINE (AMLODIPINE) (AMLODIPINE) [Concomitant]
  10. FLUVASTATIN (FLUVASTATIN)(FLUVASTATIN) [Concomitant]
  11. DECORTIN (PREDNISONE)(PREDNISONE) [Concomitant]
  12. OMEPRAZOLE (OMEPRAZOLE)(OMEPRAZOLE) [Concomitant]
  13. ASPIRIN (ACETYLSALICYLIC ACID)(ACETYLSALICYLIC ACID) [Concomitant]
  14. DIGOSTADA (BETA-ACETYLDIGOXIN) (BETA-ACETYLDIGOXIN) [Concomitant]
  15. DEXAMETHASONE (DEXAMETHASONE) (DEXAMETHASONE) [Concomitant]
  16. GRANISETRON (GRANISETRON) (GRANISETRON) [Concomitant]

REACTIONS (4)
  - Angina pectoris [None]
  - Chest pain [None]
  - Asthenia [None]
  - Cardiotoxicity [None]
